FAERS Safety Report 10645968 (Version 2)
Quarter: 2014Q4

REPORT INFORMATION
  Report Type: Spontaneous
  Country: IT (occurrence: IT)
  Receive Date: 20141211
  Receipt Date: 20141211
  Transmission Date: 20150529
  Serious: Yes (Hospitalization)
  Sender: FDA-Public Use
  Company Number: IT-TEVA-525260ISR

PATIENT
  Age: 60 Year
  Sex: Female

DRUGS (3)
  1. MYFENAX [Suspect]
     Active Substance: MYCOPHENOLATE MOFETIL
     Indication: RENAL TRANSPLANT
     Dosage: 1000 MILLIGRAM DAILY;
     Route: 048
     Dates: start: 20140901, end: 20141020
  2. ADVAGRAF [Concomitant]
     Active Substance: TACROLIMUS
     Dosage: PROLONGED RELEASE HARD CAPSULES
  3. MEDROL 4 MG [Concomitant]

REACTIONS (5)
  - Dysphagia [Recovering/Resolving]
  - Retching [Recovering/Resolving]
  - Leukocytosis [Recovering/Resolving]
  - Hyperchlorhydria [Recovering/Resolving]
  - Nausea [Recovering/Resolving]

NARRATIVE: CASE EVENT DATE: 20140904
